FAERS Safety Report 24712023 (Version 1)
Quarter: 2024Q4

REPORT INFORMATION
  Report Type: Spontaneous
  Country: ES (occurrence: ES)
  Receive Date: 20241209
  Receipt Date: 20241209
  Transmission Date: 20250115
  Serious: Yes (Other)
  Sender: AMGEN
  Company Number: ES-AMGEN-ESPSP2024238695

PATIENT
  Sex: Female
  Weight: 55 kg

DRUGS (3)
  1. TRASTUZUMAB [Suspect]
     Active Substance: TRASTUZUMAB
     Indication: Breast cancer metastatic
     Dosage: 5.4 MILLIGRAM, Q3WK
     Route: 065
  2. PERTUZUMAB [Suspect]
     Active Substance: PERTUZUMAB
     Indication: Breast cancer metastatic
     Dosage: UNK UNK, Q3WK
     Route: 065
     Dates: start: 20210104, end: 20240905
  3. DOCETAXEL [Suspect]
     Active Substance: DOCETAXEL
     Indication: Breast cancer metastatic
     Route: 065

REACTIONS (2)
  - Breast cancer metastatic [Unknown]
  - Off label use [Unknown]
